FAERS Safety Report 16239427 (Version 2)
Quarter: 2019Q2

REPORT INFORMATION
  Report Type: Report from Study
  Country: ZA (occurrence: ZA)
  Receive Date: 20190425
  Receipt Date: 20190502
  Transmission Date: 20190711
  Serious: Yes (Death, Hospitalization, Other)
  Sender: FDA-Public Use
  Company Number: ZA-AMGEN-ZAFSL2019062986

PATIENT
  Age: 76 Year
  Sex: Male

DRUGS (1)
  1. ARANESP [Suspect]
     Active Substance: DARBEPOETIN ALFA
     Indication: CHRONIC KIDNEY DISEASE
     Dosage: 80 MICROGRAM, QWK
     Route: 058
     Dates: start: 201612, end: 201903

REACTIONS (2)
  - Myocardial infarction [Fatal]
  - Fall [Unknown]

NARRATIVE: CASE EVENT DATE: 2019
